FAERS Safety Report 7315209-7 (Version None)
Quarter: 2011Q1

REPORT INFORMATION
  Report Type: 
  Country: None (occurrence: None)
  Receive Date: 20110215
  Receipt Date: 20110202
  Transmission Date: 20110831
  Serious: Yes (Life-Threatening, Hospitalization, Disabling)
  Sender: FDA-Public Use
  Company Number: FR-004651

PATIENT
  Sex: Male

DRUGS (4)
  1. GENOTONORM (GENOTONORM) 12 IU (NOT SPECIFIED) [Suspect]
     Indication: HYPOPITUITARISM
     Dosage: (IN 5 SUBCUTANEOUS INJECTIONS SUBCUTANEOUS)
     Route: 058
     Dates: start: 19990824, end: 19991222
  2. LEVOTHYROX [Concomitant]
  3. HYDROCORTISONE [Suspect]
     Indication: HYPOPHYSECTOMY
     Dosage: (25 MG, 18 MONTHS BEFORE THE EVENT ORAL)
     Route: 048
     Dates: start: 19980601
  4. MINIRIN [Suspect]
     Indication: HYPOPHYSECTOMY
     Dosage: (0.2 MG, 18 MONTHS BEFORE THE EVENT ORAL)
     Route: 048
     Dates: start: 19980601

REACTIONS (5)
  - HEMIPLEGIA [None]
  - BRAIN OEDEMA [None]
  - COMA [None]
  - CONVULSION [None]
  - FEBRILE CONVULSION [None]
